FAERS Safety Report 18561106 (Version 5)
Quarter: 2021Q3

REPORT INFORMATION
  Report Type: Report from Study
  Country: US (occurrence: US)
  Receive Date: 20201130
  Receipt Date: 20210929
  Transmission Date: 20211014
  Serious: Yes (Death, Life-Threatening, Other)
  Sender: FDA-Public Use
  Company Number: US-TAKEDA-US-001070

PATIENT
  Sex: Female

DRUGS (23)
  1. TEDUGLUTIDE [Suspect]
     Active Substance: TEDUGLUTIDE
     Indication: SHORT-BOWEL SYNDROME
     Dosage: 0.215 MILLILITER, QD
     Route: 058
     Dates: start: 201404, end: 2014
  2. SYNTHROID [Concomitant]
     Active Substance: LEVOTHYROXINE SODIUM
     Indication: HYPOTHYROIDISM
     Dosage: 0.15 MICROGRAM, QD
     Route: 065
  3. TEDUGLUTIDE [Suspect]
     Active Substance: TEDUGLUTIDE
     Indication: SHORT-BOWEL SYNDROME
     Dosage: 0.215 MILLILITER, QD
     Route: 058
     Dates: start: 201404, end: 2014
  4. TEDUGLUTIDE [Suspect]
     Active Substance: TEDUGLUTIDE
     Dosage: 0.108 MILLILITER, QOD
     Route: 058
     Dates: start: 2014, end: 201406
  5. TEDUGLUTIDE [Suspect]
     Active Substance: TEDUGLUTIDE
     Dosage: 0.24 UNK, QD
     Route: 058
  6. TEDUGLUTIDE [Suspect]
     Active Substance: TEDUGLUTIDE
     Dosage: 0.24 UNK, QD
     Route: 058
  7. GABAPENTIN. [Concomitant]
     Active Substance: GABAPENTIN
     Indication: NEURALGIA
     Dosage: 600 MILLIGRAM, TID
     Route: 065
  8. TEDUGLUTIDE [Suspect]
     Active Substance: TEDUGLUTIDE
     Indication: SHORT-BOWEL SYNDROME
     Dosage: 0.215 MILLILITER, QD
     Route: 058
     Dates: start: 201404, end: 2014
  9. SOMA [Concomitant]
     Active Substance: CARISOPRODOL
     Indication: ANXIETY
     Dosage: 1 DOSAGE FORM, TID
     Route: 065
  10. TEDUGLUTIDE [Suspect]
     Active Substance: TEDUGLUTIDE
     Dosage: 0.108 MILLILITER, QOD
     Route: 058
     Dates: start: 2014, end: 201406
  11. TEDUGLUTIDE [Suspect]
     Active Substance: TEDUGLUTIDE
     Dosage: 5 MILLIGRAM, QD
     Route: 058
  12. TEDUGLUTIDE [Suspect]
     Active Substance: TEDUGLUTIDE
     Dosage: 0.24 UNK, QD
     Route: 058
  13. FENTANYL TRANSDERMAL SYSTEM [Concomitant]
     Active Substance: FENTANYL
     Indication: PAIN
     Dosage: 50 MICROGRAM, QOD
     Route: 065
  14. TEDUGLUTIDE [Suspect]
     Active Substance: TEDUGLUTIDE
     Dosage: 0.24 UNK, QD
     Route: 058
  15. TEDUGLUTIDE [Suspect]
     Active Substance: TEDUGLUTIDE
     Dosage: 5 MILLIGRAM, QD
     Route: 058
  16. AVONEX [Concomitant]
     Active Substance: INTERFERON BETA-1A
     Indication: MULTIPLE SCLEROSIS
     Dosage: 1 DOSAGE FORM, 1/WEEK
     Route: 065
  17. VITAMIN D3 [Concomitant]
     Active Substance: CHOLECALCIFEROL
     Indication: VITAMIN SUPPLEMENTATION
     Dosage: 1 DOSAGE FORM, QD
     Route: 065
  18. TEDUGLUTIDE [Suspect]
     Active Substance: TEDUGLUTIDE
     Dosage: 0.108 MILLILITER, QOD
     Route: 058
     Dates: start: 2014, end: 201406
  19. TEDUGLUTIDE [Suspect]
     Active Substance: TEDUGLUTIDE
     Dosage: 5 MILLIGRAM, QD
     Route: 058
  20. TEDUGLUTIDE [Suspect]
     Active Substance: TEDUGLUTIDE
     Dosage: 5 MILLIGRAM, QD
     Route: 058
  21. TPN NO.2 [Concomitant]
     Indication: MEDICAL DIET
     Dosage: UNK
     Route: 065
  22. TEDUGLUTIDE [Suspect]
     Active Substance: TEDUGLUTIDE
     Indication: SHORT-BOWEL SYNDROME
     Dosage: 0.215 MILLILITER, QD
     Route: 058
     Dates: start: 201404, end: 2014
  23. TEDUGLUTIDE [Suspect]
     Active Substance: TEDUGLUTIDE
     Dosage: 0.108 MILLILITER, QOD
     Route: 058
     Dates: start: 2014, end: 201406

REACTIONS (4)
  - COVID-19 pneumonia [Fatal]
  - Depression [Not Recovered/Not Resolved]
  - Inability to afford medication [Not Recovered/Not Resolved]
  - Abdominal distension [Not Recovered/Not Resolved]

NARRATIVE: CASE EVENT DATE: 2014
